FAERS Safety Report 14247384 (Version 1)
Quarter: 2017Q4

REPORT INFORMATION
  Report Type: Spontaneous
  Country: US (occurrence: None)
  Receive Date: 20171201
  Receipt Date: 20171201
  Transmission Date: 20180321
  Serious: Yes (Death)
  Sender: FDA-Public Use
  Company Number: None

PATIENT
  Age: 79 Year
  Sex: Male

DRUGS (1)
  1. DOFETILIDE 500MCG MAYNE [Suspect]
     Active Substance: DOFETILIDE
     Route: 048
     Dates: start: 20170224, end: 20171013

REACTIONS (1)
  - Pneumonia [None]

NARRATIVE: CASE EVENT DATE: 20171031
